FAERS Safety Report 14220746 (Version 1)
Quarter: 2017Q4

REPORT INFORMATION
  Report Type: Spontaneous
  Country: US (occurrence: US)
  Receive Date: 20171123
  Receipt Date: 20171123
  Transmission Date: 20180321
  Serious: Yes (Hospitalization)
  Sender: FDA-Public Use
  Company Number: US-JNJFOC-20171117710

PATIENT
  Sex: Female

DRUGS (17)
  1. IPRATROPIUM BROMIDE. [Concomitant]
     Active Substance: IPRATROPIUM BROMIDE
     Route: 065
  2. GABAPENTIN. [Concomitant]
     Active Substance: GABAPENTIN
     Route: 065
  3. NITROGLYCERINE [Concomitant]
     Active Substance: NITROGLYCERIN
     Indication: CHEST PAIN
     Route: 065
  4. ONDANSETRON [Concomitant]
     Active Substance: ONDANSETRON
     Indication: NAUSEA
     Route: 065
  5. SPIRONOLACTONE. [Concomitant]
     Active Substance: SPIRONOLACTONE
     Route: 065
  6. XARELTO [Suspect]
     Active Substance: RIVAROXABAN
     Indication: PRODUCT USED FOR UNKNOWN INDICATION
     Route: 048
  7. MORPHINE [Suspect]
     Active Substance: MORPHINE
     Indication: PRODUCT USED FOR UNKNOWN INDICATION
     Route: 065
  8. LAMOTRIGINE. [Concomitant]
     Active Substance: LAMOTRIGINE
     Route: 065
  9. PANTOPRAZOLE [Concomitant]
     Active Substance: PANTOPRAZOLE
     Route: 065
  10. DULOXETINE. [Concomitant]
     Active Substance: DULOXETINE
     Route: 065
  11. LEVOFLOXACIN. [Concomitant]
     Active Substance: LEVOFLOXACIN
     Route: 065
  12. TIZANIDINE. [Concomitant]
     Active Substance: TIZANIDINE
     Route: 065
  13. ALBUTEROL. [Concomitant]
     Active Substance: ALBUTEROL
     Route: 065
  14. FUROSEMIDE. [Concomitant]
     Active Substance: FUROSEMIDE
     Route: 065
  15. CETRIZINE [Concomitant]
     Active Substance: CETIRIZINE HYDROCHLORIDE
     Route: 065
  16. METFORMIN [Concomitant]
     Active Substance: METFORMIN HYDROCHLORIDE
     Route: 065
  17. DEXTROMETHORPHAN W/GUAIFENESIN [Concomitant]
     Active Substance: DEXTROMETHORPHAN HYDROBROMIDE\GUAIFENESIN
     Indication: COUGH
     Route: 065

REACTIONS (10)
  - Atrial fibrillation [Unknown]
  - Chronic obstructive pulmonary disease [Recovering/Resolving]
  - Respiratory failure [Recovering/Resolving]
  - Fibromyalgia [Unknown]
  - Hypertension [Unknown]
  - Pneumonia [Recovering/Resolving]
  - Cardiac failure congestive [Recovering/Resolving]
  - Sleep apnoea syndrome [Unknown]
  - Pain [Unknown]
  - Depression [Unknown]
